FAERS Safety Report 18764151 (Version 3)
Quarter: 2021Q2

REPORT INFORMATION
  Report Type: Report from Study
  Country: US (occurrence: US)
  Receive Date: 20210120
  Receipt Date: 20210404
  Transmission Date: 20210717
  Serious: Yes (Other)
  Sender: FDA-Public Use
  Company Number: NVSC2021US007563

PATIENT
  Sex: Female

DRUGS (1)
  1. PIQRAY [Suspect]
     Active Substance: ALPELISIB
     Indication: PRODUCT USED FOR UNKNOWN INDICATION
     Dosage: UNK
     Route: 048

REACTIONS (12)
  - Glucose tolerance impaired [Unknown]
  - Weight decreased [Unknown]
  - Product availability issue [Unknown]
  - Type 2 diabetes mellitus [Unknown]
  - Product administration error [Unknown]
  - Nausea [Unknown]
  - Blood cholesterol increased [Unknown]
  - Eating disorder [Unknown]
  - Abdominal discomfort [Unknown]
  - Decreased appetite [Unknown]
  - Blood glucose increased [Unknown]
  - Asthenia [Unknown]
